FAERS Safety Report 22077139 (Version 1)
Quarter: 2023Q1

REPORT INFORMATION
  Report Type: Spontaneous
  Country: FR (occurrence: FR)
  Receive Date: 20230309
  Receipt Date: 20230309
  Transmission Date: 20230418
  Serious: Yes (Death, Life-Threatening, Other)
  Sender: FDA-Public Use
  Company Number: FR-AMGEN-FRASP2023038977

PATIENT

DRUGS (10)
  1. BEVACIZUMAB [Suspect]
     Active Substance: BEVACIZUMAB
     Indication: Brain neoplasm
     Dosage: 10 MILLIGRAM/KG, Q2WK
     Route: 042
  2. THALIDOMIDE [Concomitant]
     Active Substance: THALIDOMIDE
     Indication: Brain neoplasm
     Dosage: 3 MILLIGRAM/KG, QD
     Route: 048
  3. FENOFIBRATE [Concomitant]
     Active Substance: FENOFIBRATE
     Dosage: 90 MILLIGRAM/METER SQAURE, QD
     Route: 048
  4. CELECOXIB [Concomitant]
     Active Substance: CELECOXIB
     Dosage: 100-400 MG, BID
     Route: 048
  5. ETOPOSIDE [Concomitant]
     Active Substance: ETOPOSIDE
     Dosage: 50 MILLIGRAM/METER SQAURE, QD
  6. ETOPOSIDE [Concomitant]
     Active Substance: ETOPOSIDE
     Dosage: 50 MILLIGRAM/METER SQAURE, QD
     Route: 042
  7. ETOPOSIDE [Concomitant]
     Active Substance: ETOPOSIDE
     Dosage: 50 MILLIGRAM/METER SQAURE, QD
     Route: 042
  8. CYCLOPHOSPHAMIDE [Concomitant]
     Active Substance: CYCLOPHOSPHAMIDE
     Dosage: 2.5 MILLIGRAM/KG, QD
  9. CYTARABINE [Concomitant]
     Active Substance: CYTARABINE
     Dosage: 25-50 MILLIGRAM, Q3WK
  10. CYTARABINE [Concomitant]
     Active Substance: CYTARABINE

REACTIONS (17)
  - Death [Fatal]
  - Brain neoplasm [Fatal]
  - Status epilepticus [Unknown]
  - Encephalitis [Unknown]
  - Haematuria [Unknown]
  - Hemiparesis [Unknown]
  - Thyroiditis [Unknown]
  - Anaemia [Unknown]
  - Thrombocytopenia [Unknown]
  - Neutropenia [Unknown]
  - Neuropathy peripheral [Unknown]
  - Rectal haemorrhage [Unknown]
  - Mucosal inflammation [Unknown]
  - Rhinitis [Unknown]
  - Device issue [Unknown]
  - Therapy partial responder [Unknown]
  - Off label use [Unknown]
